FAERS Safety Report 4610118-6 (Version None)
Quarter: 2005Q1

REPORT INFORMATION
  Report Type: 
  Country: None (occurrence: None)
  Receive Date: 20050316
  Receipt Date: 20050225
  Transmission Date: 20050727
  Serious: Yes (Death, Other)
  Sender: FDA-Public Use
  Company Number: LS-BRISTOL-MYERS SQUIBB COMPANY-12876918

PATIENT
  Age: 31 Year
  Sex: Male

DRUGS (3)
  1. STAVUDINE [Suspect]
     Indication: HIV INFECTION
     Dates: start: 20050106, end: 20050208
  2. LAMIVUDINE [Suspect]
     Indication: HIV INFECTION
     Dates: start: 20050106, end: 20050208
  3. NEVIRAPINE [Suspect]
     Indication: HIV INFECTION
     Dates: start: 20050106, end: 20050208

REACTIONS (7)
  - ORAL CANDIDIASIS [None]
  - OVERDOSE [None]
  - PAIN [None]
  - PAIN IN EXTREMITY [None]
  - RENAL FAILURE [None]
  - RESTLESSNESS [None]
  - VOMITING [None]
